FAERS Safety Report 4310731-X (Version None)
Quarter: 2004Q1

REPORT INFORMATION
  Report Type: 
  Country: None (occurrence: None)
  Receive Date: 20040302
  Receipt Date: 20040217
  Transmission Date: 20041129
  Serious: Yes (Life-Threatening, Hospitalization)
  Sender: FDA-Public Use
  Company Number: RENA-10728

PATIENT
  Age: 74 Year
  Sex: Female
  Weight: 38.7 kg

DRUGS (12)
  1. RENAGEL [Suspect]
     Indication: HYPERPHOSPHATAEMIA
     Dosage: 3 G TID PO
     Route: 048
     Dates: start: 20030711, end: 20031018
  2. SENNA LEAF [Concomitant]
  3. FAMOTIDINE [Concomitant]
  4. TROXIPIDE [Concomitant]
  5. MEQUITAZINE [Concomitant]
  6. DOXAZOSIN MESYLATE [Concomitant]
  7. AMLODIPINE [Concomitant]
  8. MANIDIPINE HYDROCHLORIDE [Concomitant]
  9. AMEZINIUM METISULFATE [Concomitant]
  10. DIFENIDOL HYDROCHLORIDE [Concomitant]
  11. ADENOSINE TRIPHOSPHATE DISODIUM SALT [Concomitant]
  12. DIALYSIS FLUID [Concomitant]

REACTIONS (4)
  - FAECES HARD [None]
  - FAECES PALE [None]
  - INTESTINAL OBSTRUCTION [None]
  - MENIERE'S DISEASE [None]
